FAERS Safety Report 7136088-7 (Version None)
Quarter: 2010Q4

REPORT INFORMATION
  Report Type: 
  Country: None (occurrence: None)
  Receive Date: 20101204
  Receipt Date: 20100819
  Transmission Date: 20110411
  Serious: Yes (Hospitalization)
  Sender: FDA-Public Use
  Company Number: US-BAYER-201025149NA

PATIENT

DRUGS (2)
  1. YASMIN [Suspect]
     Indication: CONTRACEPTION
     Route: 048
     Dates: start: 20070718, end: 20071101
  2. YASMIN [Suspect]
     Indication: ACNE

REACTIONS (6)
  - BILIARY DYSKINESIA [None]
  - CHOLECYSTITIS [None]
  - DRUG DOSE OMISSION [None]
  - DRUG EXPOSURE DURING PREGNANCY [None]
  - PREGNANCY TEST URINE POSITIVE [None]
  - TREATMENT NONCOMPLIANCE [None]
